FAERS Safety Report 8776942 (Version 1)
Quarter: 2012Q4

REPORT INFORMATION
  Report Type: 
  Country: NO (occurrence: NO)
  Receive Date: 20120911
  Receipt Date: 20120911
  Transmission Date: 20130627
  Serious: Yes (Hospitalization)
  Sender: FDA-Public Use
  Company Number: NO-UCBSA-8024814

PATIENT
  Age: 45 Year
  Sex: Female

DRUGS (7)
  1. XYZAL [Suspect]
     Indication: FOOD ALLERGY
     Dates: start: 20031020, end: 20040428
  2. ZYRTEC [Suspect]
     Indication: FOOD ALLERGY
     Dates: start: 20030514, end: 20031019
  3. ZYRTEC [Suspect]
     Indication: FOOD ALLERGY
     Dates: start: 200404
  4. CIPRALEX [Concomitant]
     Indication: ANXIETY
     Dates: end: 20040423
  5. SOBRIL [Concomitant]
     Indication: ANXIETY
     Dates: start: 20030514, end: 20031019
  6. SOBRIL [Concomitant]
     Indication: ANXIETY
     Dates: start: 20031020, end: 20040428
  7. SOBRIL [Concomitant]
     Indication: ANXIETY
     Dates: start: 20040329, end: 20040412

REACTIONS (14)
  - Suicidal ideation [Recovered/Resolved]
  - Panic disorder [Recovering/Resolving]
  - Urinary tract infection [Recovered/Resolved]
  - Eating disorder [Recovering/Resolving]
  - Weight decreased [Recovering/Resolving]
  - Liver disorder [Recovered/Resolved]
  - Heart rate increased [Recovering/Resolving]
  - Feeling abnormal [Recovered/Resolved]
  - Dry mouth [Recovered/Resolved]
  - Hypogeusia [Recovered/Resolved]
  - Disturbance in attention [Recovering/Resolving]
  - Parosmia [Recovered/Resolved]
  - Chills [Recovered/Resolved]
  - Feeling hot [Recovered/Resolved]
